FAERS Safety Report 22400525 (Version 1)
Quarter: 2023Q2

REPORT INFORMATION
  Report Type: Spontaneous
  Country: US (occurrence: None)
  Receive Date: 20230601
  Receipt Date: 20230601
  Transmission Date: 20230721
  Serious: Yes (Hospitalization)
  Sender: FDA-Public Use
  Company Number: None

PATIENT
  Sex: Female

DRUGS (1)
  1. HUMIRA [Suspect]
     Active Substance: ADALIMUMAB
     Indication: Inflammatory bowel disease
     Dosage: 40 MG EVERY OTHER WEEK SQ
     Route: 058
     Dates: start: 201610

REACTIONS (6)
  - Disease recurrence [None]
  - Fall [None]
  - Head injury [None]
  - Pain [None]
  - Fatigue [None]
  - Joint injury [None]
